FAERS Safety Report 8505374-8 (Version None)
Quarter: 2012Q3

REPORT INFORMATION
  Report Type: 
  Country: None (occurrence: None)
  Receive Date: 20120712
  Receipt Date: 20120702
  Transmission Date: 20120928
  Serious: Yes (Hospitalization, Other)
  Sender: FDA-Public Use
  Company Number: GB-ELI_LILLY_AND_COMPANY-IE201204002848

PATIENT
  Sex: Female

DRUGS (6)
  1. FORTEO [Suspect]
     Indication: OSTEOPOROSIS
     Dosage: 20 UG, UNK
     Route: 058
     Dates: start: 20120404, end: 20120406
  2. RAMIPRIL [Concomitant]
  3. MOVICOL                            /01625101/ [Concomitant]
  4. SERTRALINE HYDROCHLORIDE [Concomitant]
  5. CALCIUM CARBONATE [Concomitant]
  6. ACETAMINOPHEN [Concomitant]

REACTIONS (5)
  - CONVULSION [None]
  - DEPENDENCE [None]
  - CEREBROVASCULAR DISORDER [None]
  - DIZZINESS [None]
  - DEMENTIA [None]
